FAERS Safety Report 14083391 (Version 1)
Quarter: 2017Q4

REPORT INFORMATION
  Report Type: Spontaneous
  Country: FR (occurrence: FR)
  Receive Date: 20171013
  Receipt Date: 20171013
  Transmission Date: 20180321
  Serious: Yes (Hospitalization, Other)
  Sender: FDA-Public Use
  Company Number: FR-MERCK KGAA-2029956

PATIENT
  Age: 62 Year
  Sex: Female

DRUGS (1)
  1. NOVOTHYROX [Suspect]
     Active Substance: LEVOTHYROXINE SODIUM
     Indication: PRODUCT USED FOR UNKNOWN INDICATION
     Dates: start: 201704, end: 20170822

REACTIONS (6)
  - Fatigue [Unknown]
  - Alopecia [Unknown]
  - Heart rate increased [Unknown]
  - Dry throat [Unknown]
  - Blood thyroid stimulating hormone increased [Unknown]
  - Malaise [Unknown]

NARRATIVE: CASE EVENT DATE: 201704
